FAERS Safety Report 20782750 (Version 1)
Quarter: 2022Q2

REPORT INFORMATION
  Report Type: Spontaneous
  Country: US (occurrence: US)
  Receive Date: 20220504
  Receipt Date: 20220504
  Transmission Date: 20220720
  Serious: Yes (Other)
  Sender: FDA-Public Use
  Company Number: US-HORIZON THERAPEUTICS-HZN-2022-003166

PATIENT

DRUGS (1)
  1. PENNSAID [Suspect]
     Active Substance: DICLOFENAC SODIUM
     Indication: Spinal operation
     Dosage: FIRST DOSE
     Route: 065

REACTIONS (4)
  - Spinal operation [Unknown]
  - Spinal pain [Not Recovered/Not Resolved]
  - Device failure [Unknown]
  - Off label use [Unknown]
